FAERS Safety Report 13582600 (Version 1)
Quarter: 2017Q2

REPORT INFORMATION
  Report Type: Spontaneous
  Country: US (occurrence: US)
  Receive Date: 20170525
  Receipt Date: 20170525
  Transmission Date: 20170830
  Serious: Yes (Other)
  Sender: FDA-Public Use
  Company Number: US-SA-2017SA094719

PATIENT
  Sex: Female

DRUGS (8)
  1. VALSARTAN. [Concomitant]
     Active Substance: VALSARTAN
  2. HUMULIN NOS [Concomitant]
     Active Substance: INSULIN HUMAN
  3. ALIROCUMAB PREFILLED PEN [Concomitant]
     Active Substance: ALIROCUMAB
     Indication: TYPE IIA HYPERLIPIDAEMIA
     Dates: start: 20170329
  4. BRILINTA [Concomitant]
     Active Substance: TICAGRELOR
  5. ATORVASTATIN [Concomitant]
     Active Substance: ATORVASTATIN
  6. LEVEMIR [Concomitant]
     Active Substance: INSULIN DETEMIR
  7. COREG [Concomitant]
     Active Substance: CARVEDILOL
  8. PRALUENT [Suspect]
     Active Substance: ALIROCUMAB
     Indication: TYPE IIA HYPERLIPIDAEMIA
     Route: 058
     Dates: start: 20170329

REACTIONS (9)
  - Condition aggravated [Unknown]
  - Mass [Unknown]
  - Injection site swelling [Unknown]
  - Contusion [Unknown]
  - Pain [Unknown]
  - Haemorrhage [Unknown]
  - Muscle spasms [Unknown]
  - Paraesthesia [Unknown]
  - Haematoma [Unknown]
